FAERS Safety Report 7775014-4 (Version None)
Quarter: 2011Q3

REPORT INFORMATION
  Report Type: 
  Country: None (occurrence: None)
  Receive Date: 20110923
  Receipt Date: 20110922
  Transmission Date: 20111222
  Serious: Yes (Other)
  Sender: FDA-Public Use
  Company Number: US-PFIZER INC-2011226298

PATIENT
  Sex: Female
  Weight: 58.957 kg

DRUGS (2)
  1. CHANTIX [Suspect]
     Indication: SMOKING CESSATION THERAPY
     Dosage: 0.5 MG, 1X/DAY
     Route: 048
     Dates: start: 20110919
  2. CICLESONIDE [Concomitant]
     Indication: NASAL DISORDER
     Dosage: UNK
     Route: 045

REACTIONS (5)
  - FEELING HOT [None]
  - HEADACHE [None]
  - ERYTHEMA [None]
  - LIP SWELLING [None]
  - BALANCE DISORDER [None]
